FAERS Safety Report 6153028-8 (Version None)
Quarter: 2009Q2

REPORT INFORMATION
  Report Type: 
  Country: None (occurrence: None)
  Receive Date: 20090413
  Receipt Date: 20090407
  Transmission Date: 20091009
  Serious: Yes (Death, Life-Threatening, Hospitalization)
  Sender: FDA-Public Use
  Company Number: B0564656A

PATIENT
  Sex: Female

DRUGS (8)
  1. ZYLORIC [Suspect]
     Dosage: 100MG PER DAY
     Route: 048
     Dates: start: 20090115, end: 20090220
  2. AUGMENTIN '125' [Suspect]
     Indication: OBSTRUCTIVE AIRWAYS DISORDER
     Route: 048
     Dates: start: 20090222, end: 20090224
  3. RULID [Suspect]
     Indication: OBSTRUCTIVE AIRWAYS DISORDER
     Route: 048
     Dates: start: 20090224, end: 20090302
  4. APROVEL [Concomitant]
     Dosage: 300MG PER DAY
     Route: 048
  5. LASIX [Concomitant]
     Dosage: 120MG PER DAY
     Route: 048
  6. LEVOTHYROXINE SODIUM [Concomitant]
     Dosage: 50MCG PER DAY
     Route: 048
  7. VASTAREL [Concomitant]
     Dosage: 70MG PER DAY
     Route: 048
  8. LIPANTHYL [Concomitant]
     Dosage: 67MG PER DAY
     Route: 048

REACTIONS (22)
  - ANURIA [None]
  - BRONCHOPULMONARY DISEASE [None]
  - CIRCULATORY COLLAPSE [None]
  - DERMATITIS BULLOUS [None]
  - DERMATITIS EXFOLIATIVE [None]
  - DISORIENTATION [None]
  - DYSPNOEA [None]
  - ERYTHEMA [None]
  - FACE OEDEMA [None]
  - GENERAL PHYSICAL HEALTH DETERIORATION [None]
  - HYPERKALAEMIA [None]
  - HYPONATRAEMIA [None]
  - LUNG DISORDER [None]
  - MUCOUS MEMBRANE DISORDER [None]
  - NIKOLSKY'S SIGN [None]
  - PYREXIA [None]
  - RALES [None]
  - RHABDOMYOLYSIS [None]
  - SHOCK [None]
  - SKIN DISORDER [None]
  - SKIN ULCER [None]
  - TOXIC EPIDERMAL NECROLYSIS [None]
